FAERS Safety Report 6669740-8 (Version None)
Quarter: 2010Q2

REPORT INFORMATION
  Report Type: 
  Country: None (occurrence: None)
  Receive Date: 20100406
  Receipt Date: 20100401
  Transmission Date: 20101027
  Serious: Yes (Death, Hospitalization)
  Sender: FDA-Public Use
  Company Number: TW-MERCK-1004TWN00001

PATIENT
  Age: 78 Year
  Sex: Male
  Weight: 63 kg

DRUGS (1)
  1. FOSAMAX PLUS D [Suspect]
     Indication: OSTEOPOROSIS
     Route: 048
     Dates: start: 20090713, end: 20091005

REACTIONS (2)
  - LOSS OF CONSCIOUSNESS [None]
  - PYREXIA [None]
